FAERS Safety Report 8579592-7 (Version None)
Quarter: 2012Q3

REPORT INFORMATION
  Report Type: 
  Country: None (occurrence: None)
  Receive Date: 20120808
  Receipt Date: 20120727
  Transmission Date: 20120928
  Serious: Yes (Other)
  Sender: FDA-Public Use
  Company Number: JP-BRISTOL-MYERS SQUIBB COMPANY-16825374

PATIENT
  Age: 70 Year
  Sex: Female

DRUGS (3)
  1. ALLOPURINOL [Suspect]
     Route: 048
  2. METFORMIN HCL [Suspect]
     Indication: DIABETES MELLITUS
     Route: 048
  3. VICTOZA [Suspect]
     Dosage: INJ
     Route: 058

REACTIONS (4)
  - NAUSEA [None]
  - RENAL IMPAIRMENT [None]
  - VOMITING [None]
  - HYPERURICAEMIA [None]
